FAERS Safety Report 5087168-1 (Version None)
Quarter: 2006Q3

REPORT INFORMATION
  Report Type: 
  Country: None (occurrence: None)
  Receive Date: 20060821
  Receipt Date: 20060807
  Transmission Date: 20061208
  Serious: Yes (Other)
  Sender: FDA-Public Use
  Company Number: 3006095069

PATIENT
  Age: 58 Year
  Sex: Male

DRUGS (2)
  1. HALCION [Suspect]
     Indication: INSOMNIA
     Dosage: 0.25 MG (0.25 MG, 1 IN 1 D), ORAL
     Route: 048
  2. ALL OTHER THERAPEUTIC PRODUCTS (ALL OTHER THERAPEUTIC PRODUCTS) [Concomitant]

REACTIONS (1)
  - PLATELET COUNT DECREASED [None]
